FAERS Safety Report 24294005 (Version 1)
Quarter: 2024Q3

REPORT INFORMATION
  Report Type: Spontaneous
  Country: US (occurrence: US)
  Receive Date: 20240906
  Receipt Date: 20240906
  Transmission Date: 20241017
  Serious: Yes (Other)
  Sender: PFIZER
  Company Number: US-PFIZER INC-PV202400116419

PATIENT
  Age: 60 Year
  Sex: Male
  Weight: 90.703 kg

DRUGS (3)
  1. XALKORI [Suspect]
     Active Substance: CRIZOTINIB
     Indication: Anaplastic large cell lymphoma T- and null-cell types
     Dosage: 250 MG, 2X/DAY
     Route: 048
     Dates: start: 20231018
  2. XALKORI [Suspect]
     Active Substance: CRIZOTINIB
     Indication: Lymphoma
     Dosage: 250 MG (1 CAPSULE), 2X/DAY
     Route: 048
     Dates: start: 20190207
  3. XALKORI [Suspect]
     Active Substance: CRIZOTINIB
     Indication: Hodgkin^s disease

REACTIONS (1)
  - Neuropathy peripheral [Unknown]
